FAERS Safety Report 11255583 (Version 1)
Quarter: 2015Q3

REPORT INFORMATION
  Report Type: Spontaneous
  Country: US (occurrence: US)
  Receive Date: 20150709
  Receipt Date: 20150709
  Transmission Date: 20151125
  Serious: Yes (Disabling)
  Sender: FDA-Public Use
  Company Number: US-MPIJNJ-2012-05901

PATIENT
  Age: 71 Year
  Sex: Male
  Weight: 135.6 kg

DRUGS (2)
  1. VELCADE [Suspect]
     Active Substance: BORTEZOMIB
     Indication: PLASMA CELL MYELOMA
     Dosage: 2.6 MG, CYCLIC
     Route: 058
     Dates: start: 20120814, end: 20120827
  2. VELCADE [Suspect]
     Active Substance: BORTEZOMIB
     Dosage: 2.6 MG, CYCLIC
     Route: 040
     Dates: start: 20120830

REACTIONS (1)
  - Pain in extremity [Not Recovered/Not Resolved]

NARRATIVE: CASE EVENT DATE: 20120817
